FAERS Safety Report 5853590-6 (Version None)
Quarter: 2008Q3

REPORT INFORMATION
  Report Type: 
  Country: None (occurrence: None)
  Receive Date: 20080822
  Receipt Date: 20080811
  Transmission Date: 20090109
  Serious: Yes (Other)
  Sender: FDA-Public Use
  Company Number: US-JNJFOC-20080703499

PATIENT
  Sex: Female
  Weight: 54.89 kg

DRUGS (10)
  1. REMICADE [Suspect]
     Dosage: THIRD DOSE
     Route: 042
  2. REMICADE [Suspect]
     Route: 042
  3. REMICADE [Suspect]
     Indication: COLITIS ULCERATIVE
     Route: 042
  4. PURENTHAL [Concomitant]
  5. PRILOSEC [Concomitant]
  6. LIALDA [Concomitant]
  7. PREDNISONE TAB [Concomitant]
  8. DICYCLOMINE [Concomitant]
  9. HYDROCHLOROTHIAZIDE [Concomitant]
  10. BENTYL [Concomitant]

REACTIONS (1)
  - PEMPHIGOID [None]
